FAERS Safety Report 24326590 (Version 1)
Quarter: 2024Q3

REPORT INFORMATION
  Report Type: Spontaneous
  Country: RU (occurrence: RU)
  Receive Date: 20240917
  Receipt Date: 20240917
  Transmission Date: 20241016
  Serious: Yes (Other)
  Sender: HETERO
  Company Number: RU-AMAROX PHARMA-HET2024RU03061

PATIENT
  Sex: Female
  Weight: 77 kg

DRUGS (3)
  1. LAMIVUDINE [Suspect]
     Active Substance: LAMIVUDINE
     Indication: HIV infection
     Dosage: 2 DOSAGE FORM (1 DAY, 1 INTAKE 2 TABLETS)
     Route: 048
     Dates: start: 20240117, end: 20240712
  2. RALTEGRAVIR [Concomitant]
     Active Substance: RALTEGRAVIR
     Indication: Product used for unknown indication
     Dosage: UNK
     Route: 048
  3. TENOFOVIR [Concomitant]
     Active Substance: TENOFOVIR
     Indication: Product used for unknown indication
     Dosage: UNK
     Route: 048

REACTIONS (1)
  - Hepatotoxicity [Recovering/Resolving]

NARRATIVE: CASE EVENT DATE: 20240715
